FAERS Safety Report 11358013 (Version 1)
Quarter: 2015Q3

REPORT INFORMATION
  Report Type: Spontaneous
  Country: US (occurrence: US)
  Receive Date: 20150803
  Receipt Date: 20150803
  Transmission Date: 20151125
  Serious: No
  Sender: FDA-Public Use
  Company Number: US-ELI_LILLY_AND_COMPANY-US200910002657

PATIENT
  Age: 57 Year
  Sex: Female

DRUGS (13)
  1. LAMICTAL [Concomitant]
     Active Substance: LAMOTRIGINE
  2. NORTRIPTYLIN [Concomitant]
     Active Substance: NORTRIPTYLINE
  3. STRATTERA [Suspect]
     Active Substance: ATOMOXETINE HYDROCHLORIDE
     Dosage: 18 MG, DAILY (1/D)
     Route: 065
  4. METFORMIN [Concomitant]
     Active Substance: METFORMIN HYDROCHLORIDE
  5. VITAMIN D [Concomitant]
     Active Substance: CHOLECALCIFEROL
  6. LEXAPRO [Concomitant]
     Active Substance: ESCITALOPRAM OXALATE
  7. BENICAR HCT [Concomitant]
     Active Substance: HYDROCHLOROTHIAZIDE\OLMESARTAN MEDOXOMIL
  8. TOPROL XL [Concomitant]
     Active Substance: METOPROLOL SUCCINATE
  9. LIPITOR [Concomitant]
     Active Substance: ATORVASTATIN CALCIUM
  10. TRICOR [Concomitant]
     Active Substance: FENOFIBRATE
  11. ELMIRON [Concomitant]
     Active Substance: PENTOSAN POLYSULFATE SODIUM
  12. LUNESTA [Concomitant]
     Active Substance: ESZOPICLONE
  13. LYRICA [Concomitant]
     Active Substance: PREGABALIN

REACTIONS (3)
  - Ligament disorder [Not Recovered/Not Resolved]
  - Gait disturbance [Not Recovered/Not Resolved]
  - Tendonitis [Not Recovered/Not Resolved]
